FAERS Safety Report 4819937-4 (Version None)
Quarter: 2005Q4

REPORT INFORMATION
  Report Type: 
  Country: None (occurrence: None)
  Receive Date: 20051103
  Receipt Date: 20051006
  Transmission Date: 20060501
  Serious: Yes (Death, Hospitalization)
  Sender: FDA-Public Use
  Company Number: GB-MERCK-0510GBR00047

PATIENT
  Age: 55 Year
  Sex: Male

DRUGS (10)
  1. HYDROCORTONE [Suspect]
     Route: 048
  2. ANAKINRA [Suspect]
     Indication: RHEUMATOID ARTHRITIS
     Route: 058
     Dates: start: 20050311, end: 20050322
  3. ANAKINRA [Suspect]
     Indication: AMYLOIDOSIS
     Route: 058
     Dates: start: 20050311, end: 20050322
  4. FOLIC ACID [Suspect]
     Route: 065
     Dates: start: 20041101
  5. HYDROCORTISONE [Concomitant]
     Route: 065
  6. ATORVASTATIN CALCIUM [Concomitant]
     Route: 048
  7. PERINDOPRIL [Concomitant]
     Route: 048
  8. METHOTREXATE [Suspect]
     Indication: RHEUMATOID ARTHRITIS
     Route: 048
     Dates: start: 20041101
  9. CELECOXIB [Concomitant]
     Indication: RHEUMATOID ARTHRITIS
     Route: 048
     Dates: start: 20050602
  10. WARFARIN [Concomitant]
     Route: 048

REACTIONS (9)
  - ARM AMPUTATION [None]
  - BLISTER [None]
  - DIARRHOEA [None]
  - LOCALISED INFECTION [None]
  - NECROTISING FASCIITIS STREPTOCOCCAL [None]
  - RENAL FAILURE [None]
  - SKIN DISCOLOURATION [None]
  - STREPTOCOCCAL SEPSIS [None]
  - VOMITING [None]
